FAERS Safety Report 6832010-9 (Version None)
Quarter: 2010Q2

REPORT INFORMATION
  Report Type: 
  Country: None (occurrence: None)
  Receive Date: 20100624
  Receipt Date: 20100611
  Transmission Date: 20101027
  Serious: Yes (Hospitalization)
  Sender: FDA-Public Use
  Company Number: 20100611CINRY1515

PATIENT
  Age: 38 Year
  Sex: Female
  Weight: 132.9039 kg

DRUGS (1)
  1. CINRYZE [Suspect]
     Indication: HEREDITARY ANGIOEDEMA
     Dosage: 1000 UNIT, 2 IN 1 WK, INTRAVENOUS
     Route: 042
     Dates: start: 20100401

REACTIONS (2)
  - CATHETER SITE PAIN [None]
  - MALAISE [None]
